FAERS Safety Report 6679337-1 (Version None)
Quarter: 2010Q2

REPORT INFORMATION
  Report Type: 
  Country: None (occurrence: None)
  Receive Date: 20100413
  Receipt Date: 20100402
  Transmission Date: 20101027
  Serious: Yes (Other)
  Sender: FDA-Public Use
  Company Number: US-JNJFOC-20100201501

PATIENT
  Sex: Female
  Weight: 88 kg

DRUGS (1)
  1. SIMPLY SLEEP NIGHTTIME [Suspect]
     Indication: INSOMNIA
     Route: 048

REACTIONS (8)
  - ABDOMINAL PAIN UPPER [None]
  - DIARRHOEA [None]
  - FLUSHING [None]
  - HYPERSENSITIVITY [None]
  - MUSCULOSKELETAL DISCOMFORT [None]
  - PHARYNGEAL OEDEMA [None]
  - PRODUCT QUALITY ISSUE [None]
  - URTICARIA [None]
